FAERS Safety Report 5062395-8 (Version None)
Quarter: 2006Q3

REPORT INFORMATION
  Report Type: 
  Country: None (occurrence: None)
  Receive Date: 20060721
  Receipt Date: 20060712
  Transmission Date: 20061208
  Serious: Yes (Hospitalization)
  Sender: FDA-Public Use
  Company Number: 06-NIP00107

PATIENT
  Age: 82 Year
  Sex: Male
  Weight: 72.5755 kg

DRUGS (28)
  1. NIPENT [Suspect]
     Indication: CHRONIC LYMPHOCYTIC LEUKAEMIA
     Dosage: 0.2619 MG (5.5 MG, ON DAY 1 OF 21 DAY CYCLE)
     Dates: start: 20060501, end: 20060622
  2. RITUXAN [Suspect]
     Indication: CHRONIC LYMPHOCYTIC LEUKAEMIA
     Dosage: 32.5238 MG (683 MG, ON DAY 1 OF 21 DAY CYCLE)
     Dates: start: 20060508, end: 20060622
  3. CYTOXAN [Suspect]
     Indication: CHRONIC LYMPHOCYTIC LEUKAEMIA
     Dosage: 52 MG (1092 MG, ON DAY 1 OF 21 DAY CYCLE)
     Dates: start: 20060501, end: 20060622
  4. ALOXI (PALONOSETRON HYDROCHLORIDE) (PALONOSETRON HYDROCHLORIDE) [Concomitant]
  5. DECADRON [Concomitant]
  6. ARANESP [Concomitant]
  7. HEPARIN [Concomitant]
  8. NAPROXEN [Concomitant]
  9. FUROSEMIDE (FUROSEMIDE) (FUROSEMIDE) [Concomitant]
  10. NORVASC [Concomitant]
  11. LOVESTATIN (LOVASTATIN) (LOVASTATIN) [Concomitant]
  12. TRAMADOL HCL [Concomitant]
  13. ASA (ACETYLSALICYLIC ACID) (ACETYLSALICYLIC ACID) [Concomitant]
  14. VIT E (TOCOPHEROL) (TOCOPHEROL) [Concomitant]
  15. VIT C (ASCORIC ACID) (ASCORBIC ACID) [Concomitant]
  16. K+ (POTASSIUM) (POTASSIUM) [Concomitant]
  17. GLUCOSAMINE CHONDROITEN (GLUCOSAMINE, CHONDROITIN SULFATE) (GLUCOSAMIN [Concomitant]
  18. CALCIUM (CALCIUM) (CALCIUM) [Concomitant]
  19. LISINOPRIL [Concomitant]
  20. VIT B12 (CYANOCOBALAMIN) (CYANOCOBALAMIN) [Concomitant]
  21. MUCINEX (GUAIFENESIN) (GUAIFENESIN) [Concomitant]
  22. DIONEB [Concomitant]
  23. COMPAZINE (PROCHLORPERAZINE EDISYLATE) (PROCHLORPERAZINE EDISYLATE) [Concomitant]
  24. ALLOPURINOL (ALLOPURINOL) (ALLOPURINOL) [Concomitant]
  25. ACYCLOVIR (ACICLOVIR) (ACICLOVIR) [Concomitant]
  26. BACTRIM DS (SULFAMETHOXAZOLE, TRIMETHOPRIM) (SULFAMETHOXAZOLE, TRIMETH [Concomitant]
  27. MEGACE ES (MEGESTROL ACETATE) (MEGESTROL ACETATE) [Concomitant]
  28. KYTRIL (GRANISETRON) (GRANISETRON) [Concomitant]

REACTIONS (3)
  - ATELECTASIS [None]
  - ATRIAL FIBRILLATION [None]
  - SUPRAVENTRICULAR TACHYCARDIA [None]
